FAERS Safety Report 16219087 (Version 2)
Quarter: 2019Q3

REPORT INFORMATION
  Report Type: Spontaneous
  Country: MX (occurrence: MX)
  Receive Date: 20190419
  Receipt Date: 20190724
  Transmission Date: 20191004
  Serious: Yes (Hospitalization)
  Sender: FDA-Public Use
  Company Number: MX-ANIPHARMA-2019-MX-000008

PATIENT
  Age: 90 Year
  Sex: Male
  Weight: 52 kg

DRUGS (3)
  1. ATACAND HCT [Suspect]
     Active Substance: CANDESARTAN CILEXETIL\HYDROCHLOROTHIAZIDE
     Indication: BLOOD PRESSURE MEASUREMENT
     Dosage: 16MG / 12.5 MG 1 DF DAILY
     Route: 048
     Dates: start: 20190313
  2. OPTIMIN [Concomitant]
     Dosage: 1 TABLESPOON IN THE MORNING AND ANOTHER AT NIGHT
     Route: 048
     Dates: start: 20190408
  3. AMLODIPIN [Concomitant]
     Active Substance: AMLODIPINE BESYLATE
     Dosage: 5 MG DAILY
     Route: 048

REACTIONS (5)
  - Dizziness [Recovering/Resolving]
  - Product dose omission [Unknown]
  - Blood glucose increased [Unknown]
  - Hypotension [Not Recovered/Not Resolved]
  - Syncope [Recovered/Resolved]
